FAERS Safety Report 8396588-9 (Version None)
Quarter: 2012Q2

REPORT INFORMATION
  Report Type: 
  Country: None (occurrence: None)
  Receive Date: 20120530
  Receipt Date: 20120521
  Transmission Date: 20120825
  Serious: Yes (Hospitalization)
  Sender: FDA-Public Use
  Company Number: US-JNJFOC-20120517781

PATIENT
  Sex: Female

DRUGS (4)
  1. MORPHINE [Concomitant]
  2. XARELTO [Suspect]
     Indication: KNEE ARTHROPLASTY
     Route: 048
     Dates: start: 20120501
  3. HYDROCORTISONE [Concomitant]
  4. PERCOCET [Concomitant]

REACTIONS (5)
  - DEPRESSED LEVEL OF CONSCIOUSNESS [None]
  - ADRENAL DISORDER [None]
  - DEEP VEIN THROMBOSIS [None]
  - ATRIAL FIBRILLATION [None]
  - PYREXIA [None]
